FAERS Safety Report 7636441-9 (Version None)
Quarter: 2011Q3

REPORT INFORMATION
  Report Type: 
  Country: None (occurrence: None)
  Receive Date: 20110726
  Receipt Date: 20110722
  Transmission Date: 20111222
  Serious: Yes (Life-Threatening, Hospitalization)
  Sender: FDA-Public Use
  Company Number: US-BRISTOL-MYERS SQUIBB COMPANY-15919798

PATIENT
  Age: 8 Year
  Sex: Female

DRUGS (13)
  1. MEROPENEM [Concomitant]
     Dates: start: 20110604
  2. VANCOMYCIN [Concomitant]
     Dates: start: 20110604
  3. ACETAMINOPHEN [Concomitant]
     Dates: start: 20110131
  4. CEFTAZIDIME [Concomitant]
     Dates: start: 20110604
  5. METRONIDAZOLE [Concomitant]
     Dates: start: 20110604, end: 20110606
  6. CETUXIMAB [Suspect]
     Indication: ASTROCYTOMA
     Route: 042
     Dates: start: 20110126, end: 20110603
  7. ONDANSETRON [Concomitant]
     Dates: start: 20110125
  8. IRINOTECAN HCL [Suspect]
     Indication: ASTROCYTOMA
     Route: 042
     Dates: start: 20110126, end: 20110603
  9. EPINEPHRINE [Concomitant]
     Dates: start: 20110604, end: 20110606
  10. MIRALAX [Concomitant]
     Dates: start: 20110131
  11. SULFAMETHOXAZOLE AND TRIMETHOPRIM [Concomitant]
     Dosage: 1DF=1 TABLET
     Dates: start: 20110131
  12. ALBUMIN (HUMAN) [Concomitant]
     Dates: start: 20110604, end: 20110605
  13. SODIUM CHLORIDE [Concomitant]
     Dates: start: 20110604, end: 20110605

REACTIONS (3)
  - HYPOVOLAEMIC SHOCK [None]
  - DIARRHOEA [None]
  - DEHYDRATION [None]
